FAERS Safety Report 9216069 (Version 5)
Quarter: 2020Q3

REPORT INFORMATION
  Report Type: Report from Study
  Country: US (occurrence: US)
  Receive Date: 20130408
  Receipt Date: 20130610
  Transmission Date: 20201104
  Serious: Yes (Death, Hospitalization)
  Sender: FDA-Public Use
  Company Number: US-CELGENEUS-163-21880-13034521

PATIENT
  Age: 73 Year
  Sex: Male
  Weight: 78 kg

DRUGS (4)
  1. REVLIMID [Suspect]
     Active Substance: LENALIDOMIDE
     Indication: PAPILLARY THYROID CANCER
     Dosage: 15 MILLIGRAM
     Route: 048
     Dates: start: 20121023, end: 20130304
  2. CEDIRANIB. [Suspect]
     Active Substance: CEDIRANIB
     Indication: PAPILLARY THYROID CANCER
     Dosage: 30 MILLIGRAM
     Route: 048
     Dates: start: 20121023, end: 20130311
  3. REVLIMID [Suspect]
     Active Substance: LENALIDOMIDE
     Dosage: 15 MILLIGRAM
     Route: 048
     Dates: start: 20130312
  4. CEDIRANIB. [Suspect]
     Active Substance: CEDIRANIB
     Dosage: 30 MILLIGRAM
     Route: 048
     Dates: start: 20130312, end: 201303

REACTIONS (4)
  - Pleural infection [Fatal]
  - Hyponatraemia [Recovered/Resolved]
  - Pneumothorax [Unknown]
  - Pleural effusion [Unknown]

NARRATIVE: CASE EVENT DATE: 201303
